FAERS Safety Report 26069599 (Version 1)
Quarter: 2025Q4

REPORT INFORMATION
  Report Type: Spontaneous
  Country: US (occurrence: US)
  Receive Date: 20251120
  Receipt Date: 20251120
  Transmission Date: 20260117
  Serious: No
  Sender: GLAND PHARMA LTD
  Company Number: US-GLANDPHARMA-US-2025GLNSPO02052

PATIENT
  Sex: Male

DRUGS (19)
  1. CARBOPLATIN [Suspect]
     Active Substance: CARBOPLATIN
     Indication: Small cell lung cancer extensive stage
     Dosage: 6 CYCLES
     Route: 065
  2. CARBOPLATIN [Suspect]
     Active Substance: CARBOPLATIN
     Indication: Metastases to bone
     Dosage: 4 CYCLES
     Route: 065
     Dates: start: 202506
  3. ETOPOSIDE [Concomitant]
     Active Substance: ETOPOSIDE
     Route: 065
     Dates: start: 2024
  4. ETOPOSIDE [Concomitant]
     Active Substance: ETOPOSIDE
     Indication: Metastases to bone
     Route: 065
     Dates: start: 202506
  5. ATEZOLIZUMAB [Concomitant]
     Active Substance: ATEZOLIZUMAB
     Indication: Metastases to bone
     Route: 065
     Dates: start: 2024
  6. ATEZOLIZUMAB [Concomitant]
     Active Substance: ATEZOLIZUMAB
     Indication: Lung carcinoma cell type unspecified stage IV
     Route: 065
     Dates: start: 202506
  7. IVERMECTIN [Concomitant]
     Active Substance: IVERMECTIN
     Indication: Product used for unknown indication
     Dosage: PER DAY
     Route: 065
     Dates: start: 202505
  8. MEBENDAZOLE [Concomitant]
     Active Substance: MEBENDAZOLE
     Indication: Product used for unknown indication
     Dosage: 500-1000 MG/DAY, 3 DAYS PER WEEK FOR 2 WEEKS
     Route: 065
     Dates: start: 202505
  9. CANNABIDIOL\HERBALS [Concomitant]
     Active Substance: CANNABIDIOL\HERBALS
     Indication: Product used for unknown indication
     Route: 065
     Dates: start: 202505
  10. CANNABIS SATIVA FLOWERING TOP [Concomitant]
     Active Substance: CANNABIS SATIVA FLOWERING TOP
     Indication: Product used for unknown indication
     Route: 065
     Dates: start: 202505
  11. TOCOTRIENOLS NOS [Concomitant]
     Indication: Product used for unknown indication
     Route: 065
     Dates: start: 202505
  12. URSODOXICOLTAURINE [Concomitant]
     Active Substance: URSODOXICOLTAURINE
     Indication: Product used for unknown indication
     Route: 065
     Dates: start: 202505
  13. VITAMIN D3 K2 [Concomitant]
     Indication: Product used for unknown indication
     Route: 065
     Dates: start: 202505
  14. MAGNESIUM [Concomitant]
     Active Substance: MAGNESIUM
     Indication: Product used for unknown indication
     Route: 065
     Dates: start: 202505
  15. ZINC [Concomitant]
     Active Substance: ZINC
     Indication: Product used for unknown indication
     Route: 065
     Dates: start: 202505
  16. SELENIUM [Concomitant]
     Active Substance: SELENIUM
     Indication: Product used for unknown indication
     Route: 065
     Dates: start: 202505
  17. CURCUMIN [Concomitant]
     Active Substance: CURCUMIN
     Indication: Product used for unknown indication
     Route: 065
     Dates: start: 202505
  18. BLACK SEED OIL [Concomitant]
     Indication: Product used for unknown indication
     Route: 065
     Dates: start: 202505
  19. PROPOLIS WAX [Concomitant]
     Active Substance: PROPOLIS WAX
     Indication: Product used for unknown indication
     Route: 065
     Dates: start: 202505

REACTIONS (1)
  - Product use in unapproved indication [Unknown]
